FAERS Safety Report 20896693 (Version 2)
Quarter: 2022Q4

REPORT INFORMATION
  Report Type: Spontaneous
  Country: US (occurrence: US)
  Receive Date: 20220531
  Receipt Date: 20221030
  Transmission Date: 20230113
  Serious: No
  Sender: FDA-Public Use
  Company Number: US-BRISTOL-MYERS SQUIBB COMPANY-2022-035155

PATIENT
  Age: 53 Year
  Sex: Male

DRUGS (2)
  1. REVLIMID [Suspect]
     Active Substance: LENALIDOMIDE
     Indication: Plasma cell myeloma
     Dosage: FREQ: TAKE 1 CAPSULE BY MOUTH DAILY FOR 21 DAYS WITH 7 DAYS OFF AS PART OF A 28 DAY CYCLE.
     Route: 048
     Dates: start: 20220422
  2. REVLIMID [Suspect]
     Active Substance: LENALIDOMIDE
     Dosage: FREQ: TAKE 1 CAPSULE BY MOUTH EVERY DAY ON DAYS 1-14 THEN STOP FOR 14 DAYS. DO NOT BREAK, CHEW OR OP
     Route: 048
     Dates: start: 20220422

REACTIONS (5)
  - Asthenia [Unknown]
  - Nausea [Unknown]
  - Pain [Unknown]
  - Insomnia [Unknown]
  - Intentional product use issue [Unknown]

NARRATIVE: CASE EVENT DATE: 20220101
